FAERS Safety Report 8596426-5 (Version None)
Quarter: 2012Q3

REPORT INFORMATION
  Report Type: 
  Country: None (occurrence: None)
  Receive Date: 20120807
  Receipt Date: 20120807
  Transmission Date: 20120928
  Serious: Yes (Other)
  Sender: FDA-Public Use
  Company Number: None

PATIENT
  Sex: Female

DRUGS (2)
  1. POLYETHYLENE GLYCOL [Suspect]
     Indication: CONSTIPATION
     Dosage: 17G ONCE A DAY ORAL
     Route: 048
  2. CINTHROYD [Concomitant]

REACTIONS (3)
  - EYE SWELLING [None]
  - PHOTOSENSITIVITY REACTION [None]
  - URTICARIA [None]
